FAERS Safety Report 6081690-7 (Version None)
Quarter: 2009Q1

REPORT INFORMATION
  Report Type: 
  Country: None (occurrence: None)
  Receive Date: 20090130
  Receipt Date: 20080213
  Transmission Date: 20090719
  Serious: Yes (Hospitalization, Other)
  Sender: FDA-Public Use
  Company Number: 1713747-2009-000004

PATIENT
  Age: 36 Year
  Sex: Female
  Weight: 56 kg

DRUGS (1)
  1. STAY SAFE 2.5% DEX. LM 2.5/3L, 5 PK [Suspect]
     Indication: RENAL FAILURE CHRONIC
     Dosage: INTRAPERITONEALLY
     Route: 033
     Dates: start: 20080113

REACTIONS (1)
  - PERITONITIS [None]
